FAERS Safety Report 20719004 (Version 1)
Quarter: 2022Q2

REPORT INFORMATION
  Report Type: Spontaneous
  Country: CA (occurrence: CA)
  Receive Date: 20220418
  Receipt Date: 20220418
  Transmission Date: 20220720
  Serious: Yes (Hospitalization, Disabling)
  Sender: FDA-Public Use
  Company Number: None

PATIENT
  Age: 18 Year
  Sex: Male
  Weight: 78 kg

DRUGS (71)
  1. ETOPOSIDE [Suspect]
     Active Substance: ETOPOSIDE
     Indication: Lymphoma
     Route: 041
  2. METHOTREXATE [Suspect]
     Active Substance: METHOTREXATE
     Indication: Prophylaxis against graft versus host disease
     Route: 042
  3. DOXORUBICIN [Suspect]
     Active Substance: DOXORUBICIN
     Indication: Lymphoma
     Route: 041
  4. FLUDARABINE [Suspect]
     Active Substance: FLUDARABINE PHOSPHATE
     Indication: Transplant
     Route: 042
  5. CYCLOPHOSPHAMIDE [Suspect]
     Active Substance: CYCLOPHOSPHAMIDE
     Indication: Transplant
     Route: 042
  6. CYTARABINE [Suspect]
     Active Substance: CYTARABINE
     Indication: Lymphoma
     Dosage: 1 EVERY 12 HOURS
     Route: 042
  7. IFOSFAMIDE [Suspect]
     Active Substance: IFOSFAMIDE
     Indication: Lymphoma
     Route: 041
  8. VINCRISTINE SULFATE [Suspect]
     Active Substance: VINCRISTINE SULFATE
     Indication: Lymphoma
     Route: 041
  9. ACETAMINOPHEN [Concomitant]
     Active Substance: ACETAMINOPHEN
  10. ALLOPURINOL [Concomitant]
     Active Substance: ALLOPURINOL
  11. ALTEPLASE [Concomitant]
     Active Substance: ALTEPLASE
     Route: 042
  12. AMITRIPTYLINE [Concomitant]
     Active Substance: AMITRIPTYLINE
  13. AMLODIPINE [Concomitant]
     Active Substance: AMLODIPINE BESYLATE
  14. AMOXICILLIN [Concomitant]
     Active Substance: AMOXICILLIN
  15. AMPHOTERICIN B [Concomitant]
     Active Substance: AMPHOTERICIN B
  16. BUPIVACAINE [Concomitant]
     Active Substance: BUPIVACAINE
  17. CAFFEINE CITRATE [Concomitant]
     Active Substance: CAFFEINE CITRATE
  18. CALCIUM [Concomitant]
     Active Substance: CALCIUM
  19. CASPOFUNGIN [Concomitant]
     Active Substance: CASPOFUNGIN
  20. CEFAZOLIN [Concomitant]
     Active Substance: CEFAZOLIN
  21. CEFTRIAXONE [Concomitant]
     Active Substance: CEFTRIAXONE
     Route: 030
  22. CETIRIZINE [Concomitant]
     Active Substance: CETIRIZINE HYDROCHLORIDE
  23. CHOLECALCIFEROL [Concomitant]
     Active Substance: CHOLECALCIFEROL
  24. CIPROFLOXACIN [Concomitant]
     Active Substance: CIPROFLOXACIN
  25. CLONIDINE [Concomitant]
     Active Substance: CLONIDINE
  26. DEXAMETHASONE [Concomitant]
     Active Substance: DEXAMETHASONE
     Route: 014
  27. DIAZEPAM [Concomitant]
     Active Substance: DIAZEPAM
  28. DIPHENHYDRAMINE [Concomitant]
     Active Substance: DIPHENHYDRAMINE
  29. DOCUSATE SODIUM [Concomitant]
     Active Substance: DOCUSATE SODIUM
  30. EPINEPHRINE [Concomitant]
     Active Substance: EPINEPHRINE
     Route: 030
  31. ESOMEPRAZOLE [Concomitant]
     Active Substance: ESOMEPRAZOLE
  32. FENTANYL [Concomitant]
     Active Substance: FENTANYL
  33. FILGRASTIM [Concomitant]
     Active Substance: FILGRASTIM
  34. FOSCARNET SODIUM [Concomitant]
     Active Substance: FOSCARNET SODIUM
     Route: 042
  35. FUROSEMIDE [Concomitant]
     Active Substance: FUROSEMIDE
  36. GANCICLOVIR [Concomitant]
     Active Substance: GANCICLOVIR
     Route: 042
  37. HYDROCORTISONE [Concomitant]
     Active Substance: HYDROCORTISONE
     Route: 030
  38. HYDROMORPHONE HYDROCHLORIDE [Concomitant]
     Active Substance: HYDROMORPHONE HYDROCHLORIDE
  39. INSULIN NOS [Concomitant]
     Active Substance: INSULIN NOS
  40. LANSOPRAZOLE [Concomitant]
     Active Substance: LANSOPRAZOLE
  41. LORAZEPAM [Concomitant]
     Active Substance: LORAZEPAM
  42. MAGNESIUM [Concomitant]
     Active Substance: MAGNESIUM
  43. MELATONIN [Concomitant]
     Active Substance: MELATONIN
  44. MEROPENEM [Concomitant]
     Active Substance: MEROPENEM
     Route: 042
  45. MESNA [Concomitant]
     Active Substance: MESNA
  46. METHADONE [Concomitant]
     Active Substance: METHADONE HYDROCHLORIDE
  47. METHYLPREDNISOLONE [Concomitant]
     Active Substance: METHYLPREDNISOLONE
  48. METOCLOPRAMIDE [Concomitant]
     Active Substance: METOCLOPRAMIDE
  49. MORPHINE [Concomitant]
     Active Substance: MORPHINE
  50. MYCAMINE [Concomitant]
     Active Substance: MICAFUNGIN SODIUM
     Route: 042
  51. NICOTINE [Concomitant]
     Active Substance: NICOTINE
  52. ONDANSETRON [Concomitant]
     Active Substance: ONDANSETRON
  53. PANTOPRAZOLE [Concomitant]
     Active Substance: PANTOPRAZOLE
     Route: 042
  54. PIMOZIDE [Concomitant]
     Active Substance: PIMOZIDE
  55. POLYETHYLENE GLYCOL [Concomitant]
     Active Substance: POLYETHYLENE GLYCOL
  56. POTASSIUM [Concomitant]
     Active Substance: POTASSIUM
  57. PREDNISONE [Concomitant]
     Active Substance: PREDNISONE
  58. PIPERACILLIN SODIUM\TAZOBACTAM SODIUM [Concomitant]
     Active Substance: PIPERACILLIN SODIUM\TAZOBACTAM SODIUM
     Route: 042
  59. RANITIDINE [Concomitant]
     Active Substance: RANITIDINE
  60. RISPERIDONE [Concomitant]
     Active Substance: RISPERIDONE
  61. RUXOLITINIB [Concomitant]
     Active Substance: RUXOLITINIB
  62. SODIUM [Concomitant]
     Active Substance: SODIUM
  63. SODIUM PHOSPHATE [Concomitant]
     Active Substance: SODIUM PHOSPHATE
  64. TACROLIMUS [Concomitant]
     Active Substance: TACROLIMUS
  65. TRANEXAMIC ACID [Concomitant]
     Active Substance: TRANEXAMIC ACID
  66. SULFAMETHOXAZOLE\TRIMETHOPRIM [Concomitant]
     Active Substance: SULFAMETHOXAZOLE\TRIMETHOPRIM
  67. URSODEOXYCHOLIC AC [Concomitant]
  68. VALACYCLOVIR HYDROCHLORIDE [Concomitant]
     Active Substance: VALACYCLOVIR HYDROCHLORIDE
  69. VALGANCICLOVIR HYDROCHLORIDE [Concomitant]
     Active Substance: VALGANCICLOVIR HYDROCHLORIDE
  70. VENLAFAXINE HYDROCHLORIDE [Concomitant]
     Active Substance: VENLAFAXINE HYDROCHLORIDE
  71. THYMOCYTE IMMUNE GLOBULIN NOS [Concomitant]
     Active Substance: THYMOCYTE IMMUNE GLOBULIN NOS

REACTIONS (2)
  - Fatigue [Recovered/Resolved]
  - Hypogonadism [Recovered/Resolved]
